FAERS Safety Report 4908240-X (Version None)
Quarter: 2006Q1

REPORT INFORMATION
  Report Type: 
  Country: None (occurrence: None)
  Receive Date: 20060210
  Receipt Date: 20060130
  Transmission Date: 20060701
  Serious: Yes (Congenital Anomaly)
  Sender: FDA-Public Use
  Company Number: US-JNJFOC-20060106014

PATIENT
  Sex: Male

DRUGS (3)
  1. ORTHO EVRA [Suspect]
     Indication: CONTRACEPTION
     Route: 064
  2. WELLBUTRIN SR [Suspect]
     Indication: DEPRESSION
  3. BUSPIRONE [Suspect]
     Indication: DEPRESSION

REACTIONS (2)
  - PULMONARY ARTERY STENOSIS CONGENITAL [None]
  - VENTRICULAR SEPTAL DEFECT [None]
